FAERS Safety Report 4802906-8 (Version None)
Quarter: 2005Q4

REPORT INFORMATION
  Report Type: 
  Country: None (occurrence: None)
  Receive Date: 20051017
  Receipt Date: 20051017
  Transmission Date: 20060501
  Serious: Yes (Life-Threatening, Hospitalization, Disabling)
  Sender: FDA-Public Use
  Company Number: None

PATIENT
  Sex: Female
  Weight: 48.0813 kg

DRUGS (2)
  1. FORTEO [Suspect]
     Indication: OSTEOPOROSIS
     Dosage: STANDARD DOSE DAILY SUBCUTANEOUSLY
     Route: 058
     Dates: start: 20040801, end: 20050901
  2. LIPITOR [Concomitant]

REACTIONS (1)
  - LUNG NEOPLASM MALIGNANT [None]
